FAERS Safety Report 23258696 (Version 1)
Quarter: 2023Q4

REPORT INFORMATION
  Report Type: Spontaneous
  Country: US (occurrence: None)
  Receive Date: 20231202
  Receipt Date: 20231202
  Transmission Date: 20240110
  Serious: Yes (Disabling)
  Sender: FDA-Public Use
  Company Number: None

PATIENT
  Age: 40 Year
  Sex: Female
  Weight: 117 kg

DRUGS (2)
  1. QELBREE [Suspect]
     Active Substance: VILOXAZINE HYDROCHLORIDE
  2. ALEVE [Concomitant]
     Active Substance: NAPROXEN SODIUM

REACTIONS (10)
  - Headache [None]
  - Insomnia [None]
  - Constipation [None]
  - Mood swings [None]
  - Irritability [None]
  - Nausea [None]
  - Vomiting [None]
  - Migraine [None]
  - Vertigo [None]
  - Bedridden [None]

NARRATIVE: CASE EVENT DATE: 20231202
